FAERS Safety Report 7294053-3 (Version None)
Quarter: 2011Q1

REPORT INFORMATION
  Report Type: 
  Country: None (occurrence: None)
  Receive Date: 20110215
  Receipt Date: 20110211
  Transmission Date: 20110831
  Serious: Yes (Hospitalization)
  Sender: FDA-Public Use
  Company Number: US-ABBOTT-10P-163-0694143-00

PATIENT
  Sex: Male
  Weight: 113 kg

DRUGS (3)
  1. HUMIRA [Suspect]
     Indication: PSORIASIS
     Route: 058
     Dates: start: 20090623
  2. TRIAMCINOLONE [Concomitant]
     Indication: PSORIASIS
     Dates: start: 20010101
  3. SIMVASTATIN [Concomitant]
     Indication: HYPERCHOLESTEROLAEMIA
     Dosage: EVERY NIGHT
     Dates: start: 20090101

REACTIONS (1)
  - ANXIETY [None]
